FAERS Safety Report 19909693 (Version 1)
Quarter: 2021Q4

REPORT INFORMATION
  Report Type: Spontaneous
  Country: US (occurrence: US)
  Receive Date: 20211002
  Receipt Date: 20211002
  Transmission Date: 20220303
  Serious: Yes (Death)
  Sender: FDA-Public Use
  Company Number: US-TEVA-2021-US-1960482

PATIENT
  Sex: Male

DRUGS (1)
  1. VIGABATRIN [Suspect]
     Active Substance: VIGABATRIN
     Indication: Seizure
     Dosage: DISSOLVE 1 PACKET IN 10ML OF WATER. DRAW UP 9ML(450MG) AND DRINK BY MOUTH TWICE A DAY
     Route: 048
     Dates: start: 20210923

REACTIONS (1)
  - Death [Fatal]
